FAERS Safety Report 6813234-3 (Version None)
Quarter: 2010Q3

REPORT INFORMATION
  Report Type: 
  Country: None (occurrence: None)
  Receive Date: 20100701
  Receipt Date: 20100621
  Transmission Date: 20110219
  Serious: Yes (Other)
  Sender: FDA-Public Use
  Company Number: JP-PFIZER INC-2010076925

PATIENT
  Age: 61 Year
  Sex: Female

DRUGS (6)
  1. LIPITOR [Suspect]
     Indication: HYPERCHOLESTEROLAEMIA
     Dosage: 5 MG DAILY
     Route: 048
     Dates: start: 20030201
  2. LIPITOR [Suspect]
     Dosage: 20 MG DAILY
     Route: 048
     Dates: start: 20100201
  3. PREDONINE [Suspect]
     Dosage: 50 MG DAILY
     Route: 048
  4. LORAZEPAM [Concomitant]
     Dosage: UNK
  5. BENETAZON [Concomitant]
     Dosage: UNK
  6. KALIMATE [Concomitant]
     Dosage: UNK

REACTIONS (4)
  - BLOOD POTASSIUM INCREASED [None]
  - FEELING ABNORMAL [None]
  - HYPOAESTHESIA [None]
  - MUSCULAR WEAKNESS [None]
